FAERS Safety Report 22148060 (Version 1)
Quarter: 2023Q1

REPORT INFORMATION
  Report Type: Spontaneous
  Country: CN (occurrence: CN)
  Receive Date: 20230328
  Receipt Date: 20230328
  Transmission Date: 20230418
  Serious: Yes (Other)
  Sender: FDA-Public Use
  Company Number: CN-SA-SAC20230323001616

PATIENT
  Age: 36 Year
  Sex: Female
  Weight: 66 kg

DRUGS (1)
  1. ENOXAPARIN SODIUM [Suspect]
     Active Substance: ENOXAPARIN SODIUM
     Indication: Thrombosis prophylaxis
     Dosage: 0.6 ML
     Route: 041
     Dates: start: 20230315, end: 20230315

REACTIONS (5)
  - Palpitations [Recovering/Resolving]
  - Cold sweat [Recovering/Resolving]
  - Rash [Recovering/Resolving]
  - Heart rate increased [Recovering/Resolving]
  - Blood pressure increased [Recovering/Resolving]

NARRATIVE: CASE EVENT DATE: 20230315
